FAERS Safety Report 8945601 (Version 1)
Quarter: 2012Q4

REPORT INFORMATION
  Report Type: 
  Country: CA (occurrence: CA)
  Receive Date: 20121205
  Receipt Date: 20121205
  Transmission Date: 20130627
  Serious: Yes (Other)
  Sender: FDA-Public Use
  Company Number: CA-ASTRAZENECA-2012SE89639

PATIENT
  Age: 66 Year
  Sex: Female
  Weight: 59 kg

DRUGS (3)
  1. NEXIUM [Suspect]
     Indication: OESOPHAGITIS
     Route: 048
     Dates: start: 2007
  2. SYNTHROID [Concomitant]
     Dates: start: 1991
  3. EYE DROPS [Concomitant]
     Dates: start: 2002

REACTIONS (3)
  - Barrett^s oesophagus [Not Recovered/Not Resolved]
  - Gastrointestinal vascular malformation [Not Recovered/Not Resolved]
  - Intentional drug misuse [Unknown]
